FAERS Safety Report 5644623-0 (Version None)
Quarter: 2008Q1

REPORT INFORMATION
  Report Type: 
  Country: None (occurrence: None)
  Receive Date: 20080229
  Receipt Date: 20070507
  Transmission Date: 20080703
  Serious: No
  Sender: FDA-Public Use
  Company Number: A0647426A

PATIENT
  Age: 57 Year
  Sex: Male

DRUGS (3)
  1. VALTREX [Suspect]
     Indication: HERPES VIRUS INFECTION
     Dosage: 1G PER DAY
     Route: 048
     Dates: start: 20070405, end: 20070413
  2. LYSINE [Concomitant]
  3. SUN BLOCK [Concomitant]

REACTIONS (2)
  - PHOTOSENSITIVITY REACTION [None]
  - ROSACEA [None]
